FAERS Safety Report 23912470 (Version 1)
Quarter: 2024Q2

REPORT INFORMATION
  Report Type: Spontaneous
  Country: RO (occurrence: RO)
  Receive Date: 20240528
  Receipt Date: 20240528
  Transmission Date: 20240716
  Serious: Yes (Other)
  Sender: FDA-Public Use
  Company Number: RO-ELI_LILLY_AND_COMPANY-RO202405011053

PATIENT
  Age: 51 Year
  Sex: Female

DRUGS (6)
  1. ABEMACICLIB [Suspect]
     Active Substance: ABEMACICLIB
     Indication: Breast cancer
     Dosage: 150 MG, BID
     Route: 065
     Dates: start: 202309, end: 202310
  2. ABEMACICLIB [Suspect]
     Active Substance: ABEMACICLIB
     Dosage: UNK UNK, UNKNOWN
     Route: 065
     Dates: start: 20231121
  3. ABEMACICLIB [Suspect]
     Active Substance: ABEMACICLIB
     Dosage: 100 MG, BID
     Route: 065
     Dates: start: 202402
  4. ANASTROZOLE [Suspect]
     Active Substance: ANASTROZOLE
     Indication: Breast cancer
     Dosage: 1 MG, UNKNOWN
     Route: 065
     Dates: start: 202309, end: 202310
  5. ANASTROZOLE [Suspect]
     Active Substance: ANASTROZOLE
     Dosage: UNK UNK, UNKNOWN
     Route: 065
     Dates: start: 20231121
  6. ANASTROZOLE [Suspect]
     Active Substance: ANASTROZOLE
     Dosage: 1 MG, DAILY
     Route: 065
     Dates: start: 202402

REACTIONS (3)
  - Hepatic cytolysis [Unknown]
  - Diarrhoea [Unknown]
  - Diarrhoea infectious [Unknown]

NARRATIVE: CASE EVENT DATE: 20231001
